FAERS Safety Report 8472289-3 (Version None)
Quarter: 2012Q2

REPORT INFORMATION
  Report Type: 
  Country: None (occurrence: None)
  Receive Date: 20120627
  Receipt Date: 20120622
  Transmission Date: 20120825
  Serious: Yes (Hospitalization)
  Sender: FDA-Public Use
  Company Number: BE-TEVA-345101USA

PATIENT
  Sex: Female

DRUGS (2)
  1. TREANDA [Suspect]
     Dosage: 116.43 MG
     Route: 042
     Dates: start: 20120621
  2. TREANDA [Suspect]
     Dosage: 116.43 MG
     Route: 042
     Dates: start: 20120524, end: 20120525

REACTIONS (1)
  - PULMONARY OEDEMA [None]
